FAERS Safety Report 8571989-4 (Version None)
Quarter: 2012Q3

REPORT INFORMATION
  Report Type: 
  Country: None (occurrence: None)
  Receive Date: 20120724
  Receipt Date: 20120712
  Transmission Date: 20120928
  Serious: Yes (Other)
  Sender: FDA-Public Use
  Company Number: 2012MA008721

PATIENT
  Age: 63 Year
  Sex: Male

DRUGS (4)
  1. ALLOPURINOL [Concomitant]
  2. AMLODIPINE [Concomitant]
  3. RAMIPRIL [Suspect]
     Indication: PRODUCT USED FOR UNKNOWN INDICATION
     Dosage: 15 MG; QD; PO
     Route: 048
  4. ACETU;SA;OCU;OC ACID [Concomitant]

REACTIONS (2)
  - SWOLLEN TONGUE [None]
  - RESPIRATORY DISTRESS [None]
